FAERS Safety Report 19888955 (Version 2)
Quarter: 2021Q4

REPORT INFORMATION
  Report Type: Spontaneous
  Country: US (occurrence: US)
  Receive Date: 20210928
  Receipt Date: 20211008
  Transmission Date: 20220303
  Serious: No
  Sender: FDA-Public Use
  Company Number: US-JNJFOC-20210924157

PATIENT
  Sex: Female

DRUGS (10)
  1. STELARA [Suspect]
     Active Substance: USTEKINUMAB
     Indication: Product used for unknown indication
     Route: 058
  2. DUPIXENT [Suspect]
     Active Substance: DUPILUMAB
     Indication: Product used for unknown indication
     Route: 058
  3. D-BIOTIN [Concomitant]
  4. FLAXSEED [Concomitant]
     Active Substance: FLAX SEED
     Route: 048
  5. CALCIUM\CHOLECALCIFEROL [Concomitant]
     Active Substance: CALCIUM\CHOLECALCIFEROL
  6. HERBALS\TURMERIC [Concomitant]
     Active Substance: HERBALS\TURMERIC
     Route: 048
  7. IBUPROFEN [Concomitant]
     Active Substance: IBUPROFEN
  8. SULFASALAZINE [Concomitant]
     Active Substance: SULFASALAZINE
  9. ALKA-SELTZER XTRA STRENGTH [Concomitant]
     Active Substance: ANHYDROUS CITRIC ACID\ASPIRIN\SODIUM BICARBONATE
     Route: 048
  10. SULFACETAMIDE [Concomitant]
     Active Substance: SULFACETAMIDE

REACTIONS (4)
  - Condition aggravated [Unknown]
  - Sinus disorder [Unknown]
  - Drug hypersensitivity [Unknown]
  - Drug ineffective [Unknown]
